FAERS Safety Report 17435063 (Version 1)
Quarter: 2020Q1

REPORT INFORMATION
  Report Type: Spontaneous
  Country: US (occurrence: US)
  Receive Date: 20200218
  Receipt Date: 20200218
  Transmission Date: 20200409
  Serious: Yes (Death, Disabling)
  Sender: FDA-Public Use
  Company Number: None

PATIENT
  Age: 61 Year
  Sex: Female

DRUGS (1)
  1. UDENYCA [Suspect]
     Active Substance: PEGFILGRASTIM-CBQV
     Indication: NEUTROPENIA
     Dosage: ?          OTHER FREQUENCY:Q 21D POST CHEMO;?
     Route: 058
     Dates: end: 20200131

REACTIONS (1)
  - Death [None]

NARRATIVE: CASE EVENT DATE: 20200131
